FAERS Safety Report 13914105 (Version 1)
Quarter: 2017Q3

REPORT INFORMATION
  Report Type: Spontaneous
  Country: US (occurrence: US)
  Receive Date: 20170828
  Receipt Date: 20170828
  Transmission Date: 20171127
  Serious: No
  Sender: FDA-Public Use
  Company Number: US-ROCHE-1125421

PATIENT
  Age: 67 Year
  Sex: Male
  Weight: 102.3 kg

DRUGS (11)
  1. NUTROPIN [Suspect]
     Active Substance: SOMATROPIN
     Indication: GROWTH HORMONE DEFICIENCY
     Dosage: 0.8 CC
     Route: 058
     Dates: start: 20001218
  2. GLUCOPHAGE XR [Concomitant]
     Active Substance: METFORMIN HYDROCHLORIDE
     Route: 048
  3. DOXEPIN [Concomitant]
     Active Substance: DOXEPIN
     Route: 065
  4. VERAPAMIL [Concomitant]
     Active Substance: VERAPAMIL HYDROCHLORIDE
     Route: 065
  5. ZOCOR [Concomitant]
     Active Substance: SIMVASTATIN
     Route: 065
  6. SYNTHROID [Concomitant]
     Active Substance: LEVOTHYROXINE SODIUM
     Route: 048
  7. LOTENSIN HCT 20/12.5 [Concomitant]
     Route: 048
  8. NUTROPIN [Suspect]
     Active Substance: SOMATROPIN
     Indication: DWARFISM
     Dosage: 0.07CC
     Route: 058
  9. ZOLOFT [Concomitant]
     Active Substance: SERTRALINE HYDROCHLORIDE
     Route: 048
  10. DIAZEPAM. [Concomitant]
     Active Substance: DIAZEPAM
     Route: 065
  11. THYROID REPLACEMENT [Concomitant]

REACTIONS (8)
  - Myalgia [Unknown]
  - Swelling [Unknown]
  - Back pain [Unknown]
  - Neck pain [Unknown]
  - Asthenia [Unknown]
  - Temperature intolerance [Unknown]
  - Somnolence [Unknown]
  - Paraesthesia [Unknown]

NARRATIVE: CASE EVENT DATE: 20010302
